FAERS Safety Report 9366723 (Version 1)
Quarter: 2013Q2

REPORT INFORMATION
  Report Type: Spontaneous
  Country: IT (occurrence: None)
  Receive Date: 20130620
  Receipt Date: 20130620
  Transmission Date: 20140414
  Serious: Yes (Other)
  Sender: FDA-Public Use
  Company Number: DSM-2013-00566

PATIENT
  Age: 74 Year
  Sex: Male

DRUGS (4)
  1. PLAUNAC [Suspect]
     Indication: HYPERTENSION
     Route: 048
     Dates: start: 20110501, end: 20130531
  2. TICLOPIDINA(TICLOPIDINE HYDROCHLORIDE) (TICLOPIDINE HYDROCHLORIDE) [Concomitant]
  3. ATENOLOLO(ATENOLOL)(ATENOLOL) [Concomitant]
  4. MINITRAN(GLYCERYL TRINITRATE)(15 MILLIGRAM)(GLYCERYL TRINITRATE) [Concomitant]

REACTIONS (1)
  - Rhabdomyolysis [None]
